FAERS Safety Report 10163169 (Version 2)
Quarter: 2014Q2

REPORT INFORMATION
  Report Type: Spontaneous
  Country: US (occurrence: US)
  Receive Date: 20140509
  Receipt Date: 20140624
  Transmission Date: 20141212
  Serious: Yes (Other)
  Sender: FDA-Public Use
  Company Number: US-GLAXOSMITHKLINE-A1072672A

PATIENT
  Sex: Male

DRUGS (1)
  1. ADVAIR [Suspect]
     Indication: RESPIRATORY DISORDER
     Route: 055

REACTIONS (2)
  - Aspiration [Not Recovered/Not Resolved]
  - Multiple allergies [Not Recovered/Not Resolved]
